FAERS Safety Report 16861880 (Version 1)
Quarter: 2019Q3

REPORT INFORMATION
  Report Type: Spontaneous
  Country: CO (occurrence: CO)
  Receive Date: 20190927
  Receipt Date: 20190927
  Transmission Date: 20191005
  Serious: Yes (Other)
  Sender: FDA-Public Use
  Company Number: CO-009507513-1909COL011586

PATIENT
  Age: 77 Year
  Sex: Female

DRUGS (2)
  1. SIMVASTATIN. [Suspect]
     Active Substance: SIMVASTATIN
     Dosage: 20 (UNITS NOT REPORTED)
     Route: 048
  2. EZETIMBE [Suspect]
     Active Substance: EZETIMIBE

REACTIONS (1)
  - Localised oedema [Recovered/Resolved]
